FAERS Safety Report 7908345-5 (Version None)
Quarter: 2011Q4

REPORT INFORMATION
  Report Type: 
  Country: None (occurrence: None)
  Receive Date: 20111110
  Receipt Date: 20111110
  Transmission Date: 20120403
  Serious: No
  Sender: FDA-Public Use
  Company Number: None

PATIENT
  Sex: Female

DRUGS (2)
  1. CALCIUM GLUCONATE [Suspect]
  2. MAGNESIUM SULFATE [Suspect]

REACTIONS (11)
  - PRODUCT COMPOUNDING QUALITY ISSUE [None]
  - CHVOSTEK'S SIGN [None]
  - BLOOD MAGNESIUM DECREASED [None]
  - ELECTROCARDIOGRAM QT PROLONGED [None]
  - CALCIUM IONISED DECREASED [None]
  - BLOOD CALCIUM DECREASED [None]
  - DRUG DISPENSING ERROR [None]
  - SINUS TACHYCARDIA [None]
  - MEDICATION ERROR [None]
  - MUSCLE SPASMS [None]
  - ELECTROCARDIOGRAM LOW VOLTAGE [None]
